FAERS Safety Report 9144976 (Version 1)
Quarter: 2013Q1

REPORT INFORMATION
  Report Type: Spontaneous
  Country: US (occurrence: US)
  Receive Date: 20130307
  Receipt Date: 20130307
  Transmission Date: 20140127
  Serious: No
  Sender: FDA-Public Use
  Company Number: US-BIOGENIDEC-2013BI018610

PATIENT
  Sex: Female

DRUGS (5)
  1. TYSABRI [Suspect]
     Indication: MULTIPLE SCLEROSIS
     Route: 042
     Dates: start: 20120702
  2. AVONEX [Concomitant]
     Indication: MULTIPLE SCLEROSIS
     Route: 030
     Dates: start: 19971001
  3. AMPYRA [Concomitant]
     Indication: MULTIPLE SCLEROSIS
  4. THYROID MEDICATION [Concomitant]
  5. CLADRIBINE [Concomitant]
     Indication: MULTIPLE SCLEROSIS

REACTIONS (3)
  - Rhinorrhoea [Unknown]
  - Nervousness [Recovered/Resolved]
  - Nasopharyngitis [Recovered/Resolved]
